FAERS Safety Report 10098034 (Version 18)
Quarter: 2015Q2

REPORT INFORMATION
  Report Type: Report from Study
  Country: US (occurrence: US)
  Receive Date: 20140423
  Receipt Date: 20150416
  Transmission Date: 20150821
  Serious: Yes (Death, Hospitalization, Other)
  Sender: FDA-Public Use
  Company Number: US-ALEXION PHARMACEUTICALS INC.-A201401226

PATIENT

DRUGS (11)
  1. VANCOMYCIN [Concomitant]
     Active Substance: VANCOMYCIN
     Dosage: UNK
     Route: 042
     Dates: start: 201411
  2. ATENOLOL. [Concomitant]
     Active Substance: ATENOLOL
     Indication: HYPERTENSION
     Dosage: 25 MG, QD
     Route: 065
     Dates: start: 20130812
  3. HEPARIN [Concomitant]
     Active Substance: HEPARIN SODIUM
     Indication: ANTICOAGULANT THERAPY
     Dosage: 5000 IU, EVERY 12 HOURS
     Route: 058
     Dates: start: 20130812
  4. MIRTAZAPINE. [Concomitant]
     Active Substance: MIRTAZAPINE
     Indication: PRODUCT USED FOR UNKNOWN INDICATION
     Dosage: 15 MG, HS
     Route: 065
     Dates: start: 20130812
  5. VANCOMYCIN [Concomitant]
     Active Substance: VANCOMYCIN
     Indication: PRODUCT USED FOR UNKNOWN INDICATION
     Dosage: UNK
     Route: 065
     Dates: start: 20140106
  6. NARCAN [Suspect]
     Active Substance: NALOXONE HYDROCHLORIDE
     Indication: PRODUCT USED FOR UNKNOWN INDICATION
     Dosage: UNK
     Route: 065
     Dates: start: 20140702, end: 20140702
  7. HYDRALAZINE [Concomitant]
     Active Substance: HYDRALAZINE HYDROCHLORIDE
     Indication: HYPERTENSION
     Dosage: 50 MG, TID
     Route: 065
     Dates: start: 20130812
  8. CEFTAZIDIME. [Concomitant]
     Active Substance: CEFTAZIDIME
     Indication: PRODUCT USED FOR UNKNOWN INDICATION
     Dosage: UNK UNK, BID
     Route: 065
     Dates: start: 20140110
  9. SOLIRIS [Suspect]
     Active Substance: ECULIZUMAB
     Indication: HAEMOLYTIC URAEMIC SYNDROME
     Dosage: 1200 MG, Q2W
     Route: 042
     Dates: start: 20130702
  10. CLONIDINE. [Concomitant]
     Active Substance: CLONIDINE
     Indication: HYPERTENSION
     Dosage: 0.2 MG, TID
     Route: 065
     Dates: start: 20130812
  11. AMLODIPINE [Concomitant]
     Active Substance: AMLODIPINE BESYLATE
     Indication: HYPERTENSION
     Dosage: 10 MG, QD
     Route: 065
     Dates: start: 20130812

REACTIONS (44)
  - Death [Fatal]
  - Headache [Recovered/Resolved]
  - Brain oedema [Not Recovered/Not Resolved]
  - Blood pressure diastolic increased [Not Recovered/Not Resolved]
  - Blood calcium abnormal [Recovered/Resolved]
  - Blood potassium abnormal [Recovered/Resolved]
  - Unevaluable event [Unknown]
  - Pyrexia [Recovered/Resolved]
  - Cardiomyopathy [Not Recovered/Not Resolved]
  - Hypertension [Recovered/Resolved]
  - Chest pain [Not Recovered/Not Resolved]
  - Myocardial infarction [Not Recovered/Not Resolved]
  - Haemorrhage [Unknown]
  - Abdominal pain [Unknown]
  - Fungal infection [Not Recovered/Not Resolved]
  - Fluid overload [Unknown]
  - Dyspnoea [Unknown]
  - Vomiting [Unknown]
  - Substance abuse [Unknown]
  - Anaemia [Not Recovered/Not Resolved]
  - Dyspnoea [Not Recovered/Not Resolved]
  - Dyspnoea [Not Recovered/Not Resolved]
  - Sepsis [Not Recovered/Not Resolved]
  - Nausea [Not Recovered/Not Resolved]
  - Fluid overload [Unknown]
  - Unevaluable event [Unknown]
  - Unevaluable event [Unknown]
  - Peripheral swelling [Unknown]
  - Cerebrovascular accident [Not Recovered/Not Resolved]
  - Device related infection [Unknown]
  - Cerebrovascular accident [Recovering/Resolving]
  - Abdominal distension [Unknown]
  - Pseudomonas test positive [Unknown]
  - Back pain [Unknown]
  - Nausea [Unknown]
  - Fluid retention [Recovering/Resolving]
  - Unevaluable event [Not Recovered/Not Resolved]
  - Erythema [Unknown]
  - Peripheral swelling [Unknown]
  - Dyspnoea [Not Recovered/Not Resolved]
  - Ejection fraction decreased [Unknown]
  - Vomiting [Not Recovered/Not Resolved]
  - Urinary tract infection [Not Recovered/Not Resolved]
  - Fatigue [Recovering/Resolving]

NARRATIVE: CASE EVENT DATE: 20140317
